FAERS Safety Report 6264387-X (Version None)
Quarter: 2009Q3

REPORT INFORMATION
  Report Type: 
  Country: None (occurrence: None)
  Receive Date: 20090710
  Receipt Date: 20090702
  Transmission Date: 20100115
  Serious: Yes (Hospitalization)
  Sender: FDA-Public Use
  Company Number: B0581499A

PATIENT
  Sex: Female

DRUGS (4)
  1. ARIXTRA [Suspect]
     Indication: DRUG USE FOR UNKNOWN INDICATION
     Route: 058
     Dates: start: 20090515, end: 20090520
  2. DALACINE [Suspect]
     Indication: ERYSIPELAS
     Route: 048
     Dates: start: 20090512, end: 20090522
  3. TIENAM [Concomitant]
     Indication: ERYSIPELAS
     Route: 065
  4. CIPROFLOXACIN HCL [Concomitant]
     Indication: DRUG USE FOR UNKNOWN INDICATION
     Route: 065

REACTIONS (1)
  - ECZEMA [None]
